FAERS Safety Report 4650123-7 (Version None)
Quarter: 2005Q2

REPORT INFORMATION
  Report Type: 
  Country: None (occurrence: None)
  Receive Date: 20050428
  Receipt Date: 20050415
  Transmission Date: 20051028
  Serious: Yes (Life-Threatening, Hospitalization, Other)
  Sender: FDA-Public Use
  Company Number: 2005060610

PATIENT
  Age: 61 Year
  Sex: Female
  Weight: 95.2554 kg

DRUGS (5)
  1. BEXTRA [Suspect]
     Indication: BACK PAIN
     Dosage: 20 MG (20 MG, 1 IN 1 D), ORAL
     Route: 048
     Dates: start: 20020101, end: 20050412
  2. PREDNISONE TAB [Suspect]
     Indication: RASH
     Dosage: 100 MG (1 D), ORAL
     Route: 048
     Dates: start: 20020101, end: 20021101
  3. CELEBREX [Suspect]
     Indication: BACK PAIN
     Dosage: ORAL
     Route: 048
     Dates: end: 20020101
  4. FEXOFENADINE HYDROCHLORIDE [Concomitant]
  5. MONTELUKAST SODIUM (MONTELUKAST SODIUM) [Concomitant]

REACTIONS (17)
  - ATRIAL FIBRILLATION [None]
  - BLOOD CHOLESTEROL INCREASED [None]
  - CATARACT [None]
  - COUGH [None]
  - DIABETIC COMA [None]
  - DRUG INEFFECTIVE [None]
  - EYELID OEDEMA [None]
  - FACE OEDEMA [None]
  - GASTROOESOPHAGEAL REFLUX DISEASE [None]
  - GLAUCOMA [None]
  - IMMUNE SYSTEM DISORDER [None]
  - LUNG DISORDER [None]
  - NEUROPATHY [None]
  - PIGMENTATION DISORDER [None]
  - POOR PERIPHERAL CIRCULATION [None]
  - RASH [None]
  - VOCAL CORD DISORDER [None]
